FAERS Safety Report 23021278 (Version 1)
Quarter: 2023Q4

REPORT INFORMATION
  Report Type: Report from Study
  Country: US (occurrence: US)
  Receive Date: 20231003
  Receipt Date: 20231003
  Transmission Date: 20240110
  Serious: No
  Sender: FDA-Public Use
  Company Number: US-002147023-NVSC2023US212910

PATIENT
  Age: 17 Year
  Sex: Female

DRUGS (1)
  1. ILARIS [Suspect]
     Active Substance: CANAKINUMAB
     Indication: Juvenile idiopathic arthritis
     Dosage: 190 MG, Q4W
     Route: 058
     Dates: start: 20221212

REACTIONS (2)
  - Pyrexia [Unknown]
  - Streptococcal infection [Unknown]

NARRATIVE: CASE EVENT DATE: 20230829
